FAERS Safety Report 20345890 (Version 1)
Quarter: 2022Q1

REPORT INFORMATION
  Report Type: Spontaneous
  Country: US (occurrence: None)
  Receive Date: 20220115
  Receipt Date: 20220115
  Transmission Date: 20220423
  Serious: Yes (Life-Threatening, Hospitalization, Disabling, Other)
  Sender: FDA-Public Use
  Company Number: None

PATIENT
  Age: 62 Year
  Sex: Female
  Weight: 71.55 kg

DRUGS (2)
  1. REPATHA [Suspect]
     Active Substance: EVOLOCUMAB
     Indication: Blood cholesterol increased
     Dosage: OTHER FREQUENCY : EVERY OTHER FRIDAY;?
     Route: 030
     Dates: start: 20191130, end: 20200201
  2. REPATHA [Suspect]
     Active Substance: EVOLOCUMAB
     Indication: Cardiac disorder

REACTIONS (10)
  - Blood pressure decreased [None]
  - Hyperhidrosis [None]
  - Pain [None]
  - Rhinorrhoea [None]
  - Gait disturbance [None]
  - Chest pain [None]
  - Panic attack [None]
  - Anaemia [None]
  - Palpitations [None]
  - Hernia [None]

NARRATIVE: CASE EVENT DATE: 20201209
